FAERS Safety Report 15580688 (Version 1)
Quarter: 2018Q4

REPORT INFORMATION
  Report Type: Spontaneous
  Country: HR (occurrence: HR)
  Receive Date: 20181102
  Receipt Date: 20181102
  Transmission Date: 20190205
  Serious: Yes (Hospitalization, Other)
  Sender: FDA-Public Use
  Company Number: None

PATIENT
  Age: 21 Year
  Sex: Female
  Weight: 45 kg

DRUGS (5)
  1. GASTROPROTECTIVE AGENT [Concomitant]
  2. YARROW TEA [Concomitant]
  3. EMANERA [Concomitant]
     Active Substance: ESOMEPRAZOLE MAGNESIUM
  4. NUVARING [Suspect]
     Active Substance: ETHINYL ESTRADIOL\ETONOGESTREL
     Indication: HAEMORRHAGE
     Dosage: ?          QUANTITY:1 VAGINAL RING;OTHER FREQUENCY:21 DAYS;?
     Route: 067
     Dates: start: 20180520, end: 20181030
  5. ARES [Concomitant]
     Active Substance: RABEPRAZOLE SODIUM

REACTIONS (3)
  - Malabsorption [None]
  - Small intestinal perforation [None]
  - Gastrointestinal pain [None]

NARRATIVE: CASE EVENT DATE: 20180630
